FAERS Safety Report 26191995 (Version 2)
Quarter: 2025Q4

REPORT INFORMATION
  Report Type: Spontaneous
  Country: US (occurrence: US)
  Receive Date: 20251223
  Receipt Date: 20251226
  Transmission Date: 20260118
  Serious: Yes (Other)
  Sender: AMGEN
  Company Number: US-AMGEN-USASP2025250446

PATIENT
  Sex: Female

DRUGS (1)
  1. IMDELLTRA [Suspect]
     Active Substance: TARLATAMAB-DLLE
     Indication: Product used for unknown indication
     Dosage: UNK
     Route: 065

REACTIONS (3)
  - Cytokine release syndrome [Unknown]
  - Rash erythematous [Unknown]
  - Skin exfoliation [Unknown]
